FAERS Safety Report 5919005-4 (Version None)
Quarter: 2008Q4

REPORT INFORMATION
  Report Type: 
  Country: None (occurrence: None)
  Receive Date: 20081014
  Receipt Date: 20081014
  Transmission Date: 20090506
  Serious: Yes (Other)
  Sender: FDA-Public Use
  Company Number: None

PATIENT
  Age: 63 Year
  Sex: Female
  Weight: 83.9154 kg

DRUGS (1)
  1. FOSAMAX [Suspect]
     Indication: OSTEOPOROSIS
     Dosage: 1 1 A DAY OTHER
     Route: 050
     Dates: start: 20080810, end: 20080907

REACTIONS (4)
  - ARTHRALGIA [None]
  - BONE PAIN [None]
  - JOINT STIFFNESS [None]
  - MUSCLE DISORDER [None]
